FAERS Safety Report 14146149 (Version 1)
Quarter: 2017Q4

REPORT INFORMATION
  Report Type: Spontaneous
  Country: US (occurrence: US)
  Receive Date: 20171031
  Receipt Date: 20171031
  Transmission Date: 20180321
  Serious: Yes (Other)
  Sender: FDA-Public Use
  Company Number: PHHY2017US156622

PATIENT
  Sex: Female
  Weight: .86 kg

DRUGS (1)
  1. AMPICILLIN [Suspect]
     Active Substance: AMPICILLIN
     Indication: FOETAL EXPOSURE DURING PREGNANCY
     Dosage: MATERNAL DOSE UNKNOWN
     Route: 064

REACTIONS (2)
  - Premature baby [Unknown]
  - Foetal exposure during delivery [Unknown]
